FAERS Safety Report 24929092 (Version 1)
Quarter: 2025Q1

REPORT INFORMATION
  Report Type: Report from Study
  Country: ZA (occurrence: ZA)
  Receive Date: 20250205
  Receipt Date: 20250205
  Transmission Date: 20250409
  Serious: Yes (Hospitalization, Other)
  Sender: ALEXION PHARMACEUTICALS
  Company Number: ZA-AstraZeneca-CH-00735924A

PATIENT
  Age: 69 Year

DRUGS (9)
  1. DAPAGLIFLOZIN [Suspect]
     Active Substance: DAPAGLIFLOZIN
     Route: 065
  2. ECOTRIN [Concomitant]
     Active Substance: ASPIRIN
     Route: 065
  3. BRILINTA [Concomitant]
     Active Substance: TICAGRELOR
  4. Lipogen [Concomitant]
     Route: 065
  5. AMLODIPINE BESYLATE [Concomitant]
     Active Substance: AMLODIPINE BESYLATE
     Route: 065
  6. Spiractin [Concomitant]
     Route: 065
  7. CARZIN IPC [Concomitant]
     Route: 065
  8. MELOXICAM [Concomitant]
     Active Substance: MELOXICAM
     Route: 065
  9. AMLODIPINE\HYDROCHLOROTHIAZIDE\VALSARTAN [Concomitant]
     Active Substance: AMLODIPINE\HYDROCHLOROTHIAZIDE\VALSARTAN
     Route: 065

REACTIONS (2)
  - Hospitalisation [Unknown]
  - Loss of consciousness [Unknown]
